FAERS Safety Report 15494488 (Version 3)
Quarter: 2018Q4

REPORT INFORMATION
  Report Type: Report from Study
  Country: RU (occurrence: RU)
  Receive Date: 20181012
  Receipt Date: 20181114
  Transmission Date: 20190205
  Serious: Yes (Other)
  Sender: FDA-Public Use
  Company Number: RU-JNJFOC-20181013469

PATIENT

DRUGS (1)
  1. INFLIXIMAB [Suspect]
     Active Substance: INFLIXIMAB
     Indication: ANKYLOSING SPONDYLITIS
     Dosage: 0, 2, 6 THEN EVERY 8 WEEKS
     Route: 042

REACTIONS (14)
  - Hyperbilirubinaemia [Unknown]
  - Anaemia [Unknown]
  - Hypoglycaemia [Unknown]
  - Neutropenia [Unknown]
  - Lymphocytosis [Unknown]
  - Blood pressure increased [Unknown]
  - Mycobacterium tuberculosis complex test positive [Unknown]
  - Alanine aminotransferase increased [Unknown]
  - Respiratory tract infection viral [Unknown]
  - Drug specific antibody [Unknown]
  - Hyperglycaemia [Unknown]
  - Aspartate aminotransferase increased [Unknown]
  - Infusion related reaction [Unknown]
  - Hypersensitivity [Unknown]
